FAERS Safety Report 17486353 (Version 1)
Quarter: 2020Q1

REPORT INFORMATION
  Report Type: Spontaneous
  Country: IL (occurrence: IL)
  Receive Date: 20200303
  Receipt Date: 20200303
  Transmission Date: 20200409
  Serious: No
  Sender: FDA-Public Use
  Company Number: IL-ALKEM LABORATORIES LIMITED-IL-ALKEM-2020-00297

PATIENT
  Age: 9 Year
  Sex: Male

DRUGS (3)
  1. COLCHICINE. [Suspect]
     Active Substance: COLCHICINE
     Indication: FAMILIAL MEDITERRANEAN FEVER
     Dosage: 1.5 MILLIGRAM/KILOGRAM, QD
     Route: 048
  2. ANAKINRA [Concomitant]
     Active Substance: ANAKINRA
     Indication: PRODUCT USED FOR UNKNOWN INDICATION
     Dosage: UNK
     Route: 065
     Dates: start: 2016
  3. COLCHICINE. [Suspect]
     Active Substance: COLCHICINE
     Dosage: 1 MILLIGRAM, ONCE WEEKLY
     Route: 042

REACTIONS (1)
  - Drug resistance [Unknown]
